FAERS Safety Report 6235798-3 (Version None)
Quarter: 2009Q2

REPORT INFORMATION
  Report Type: 
  Country: None (occurrence: None)
  Receive Date: 20090619
  Receipt Date: 20090610
  Transmission Date: 20091009
  Serious: Yes (Other)
  Sender: FDA-Public Use
  Company Number: US-PFIZER INC-2006096786

PATIENT
  Sex: Female

DRUGS (3)
  1. PROVERA [Suspect]
     Indication: HORMONE REPLACEMENT THERAPY
     Route: 048
     Dates: start: 19910701, end: 20010913
  2. PREMARIN [Suspect]
     Indication: HORMONE REPLACEMENT THERAPY
     Dosage: 0.625 MG
     Route: 065
     Dates: start: 19910701, end: 20010913
  3. PREMARIN [Suspect]
     Dosage: 0.9 MG
     Route: 065
     Dates: start: 19910701, end: 20010913

REACTIONS (1)
  - BREAST CANCER [None]
